FAERS Safety Report 9359844 (Version 1)
Quarter: 2013Q2

REPORT INFORMATION
  Report Type: Spontaneous
  Country: US (occurrence: US)
  Receive Date: 20130621
  Receipt Date: 20130621
  Transmission Date: 20140414
  Serious: No
  Sender: FDA-Public Use
  Company Number: US-US-EMD SERONO, INC.-7163857

PATIENT
  Age: 40 Year
  Sex: Female
  Weight: 119 kg

DRUGS (3)
  1. REBIF [Suspect]
     Indication: PRODUCT USED FOR UNKNOWN INDICATION
     Route: 058
  2. REBIF [Suspect]
     Route: 058
  3. VITAMIN D [Concomitant]
     Indication: PRODUCT USED FOR UNKNOWN INDICATION
     Route: 048

REACTIONS (11)
  - Urinary tract infection [Unknown]
  - Nausea [Unknown]
  - Pain in extremity [Unknown]
  - Temperature intolerance [Unknown]
  - Muscle twitching [Unknown]
  - Dyskinesia [Unknown]
  - Hypoaesthesia [Unknown]
  - Paraesthesia [Unknown]
  - Influenza like illness [Unknown]
  - Injection site erythema [Unknown]
  - Fatigue [Unknown]
